FAERS Safety Report 7293144-0 (Version None)
Quarter: 2011Q1

REPORT INFORMATION
  Report Type: 
  Country: None (occurrence: None)
  Receive Date: 20110203
  Receipt Date: 20110118
  Transmission Date: 20110831
  Serious: Yes (Hospitalization)
  Sender: FDA-Public Use
  Company Number: DSA_44808_2011

PATIENT
  Age: 72 Year
  Sex: Male

DRUGS (2)
  1. DICLOFENAC (DICLOFENAC) [Suspect]
     Indication: ARTHRALGIA
     Dosage: (DF ORAL)
     Route: 048
     Dates: end: 20100914
  2. ENALAPRIL MALEATE AND HYDROCHLOROTHIAZIDE [Suspect]
     Indication: ESSENTIAL HYPERTENSION
     Dosage: (20-12.5 MG QD ORAL)
     Route: 048
     Dates: end: 20100914

REACTIONS (2)
  - BLOOD CREATININE INCREASED [None]
  - GOUTY ARTHRITIS [None]
